FAERS Safety Report 4907858-8 (Version None)
Quarter: 2006Q1

REPORT INFORMATION
  Report Type: 
  Country: None (occurrence: None)
  Receive Date: 20060210
  Receipt Date: 20060120
  Transmission Date: 20060701
  Serious: Yes (Hospitalization, Other)
  Sender: FDA-Public Use
  Company Number: JP-AVENTIS-200610208JP

PATIENT
  Age: 82 Year
  Sex: Male
  Weight: 70 kg

DRUGS (10)
  1. KETEK [Suspect]
     Indication: UPPER RESPIRATORY TRACT INFLAMMATION
     Dosage: DOSE: 900-1200; DOSE UNIT: MILLIGRAM PER 24 HOURS
     Route: 048
     Dates: start: 20060105, end: 20060106
  2. HUSTAZOL [Concomitant]
     Indication: UPPER RESPIRATORY TRACT INFLAMMATION
     Route: 048
     Dates: start: 20060105, end: 20060106
  3. BISOLVON [Concomitant]
     Indication: UPPER RESPIRATORY TRACT INFLAMMATION
     Route: 048
     Dates: start: 20060105, end: 20060106
  4. CODEINE PHOSPHATE [Concomitant]
     Indication: UPPER RESPIRATORY TRACT INFLAMMATION
     Route: 048
     Dates: start: 20051203, end: 20060106
  5. ADALAT [Concomitant]
     Indication: HYPERTENSION
  6. CLARITIN [Concomitant]
     Indication: PRURITUS
     Dates: start: 20040305
  7. MEDITRANS [Concomitant]
     Indication: ANGINA PECTORIS
     Dates: start: 20040220
  8. PELEX [Concomitant]
     Indication: UPPER RESPIRATORY TRACT INFLAMMATION
     Dates: start: 20051203, end: 20060104
  9. LEFTOSE [Concomitant]
     Indication: UPPER RESPIRATORY TRACT INFLAMMATION
     Dates: start: 20051203, end: 20060104
  10. CARDENALIN [Concomitant]
     Indication: HYPERTENSION
     Dates: start: 20050122

REACTIONS (10)
  - CARDIAC FAILURE CONGESTIVE [None]
  - DEHYDRATION [None]
  - FACE OEDEMA [None]
  - HAEMATURIA [None]
  - HYPERTENSION [None]
  - PLEURAL EFFUSION [None]
  - PROTEINURIA [None]
  - VENTRICULAR EXTRASYSTOLES [None]
  - WEIGHT DECREASED [None]
  - WHEEZING [None]
